FAERS Safety Report 10049187 (Version 2)
Quarter: 2014Q2

REPORT INFORMATION
  Report Type: Spontaneous
  Country: CA (occurrence: CA)
  Receive Date: 20140401
  Receipt Date: 20140416
  Transmission Date: 20141212
  Serious: Yes (Hospitalization, Other)
  Sender: FDA-Public Use
  Company Number: CA-AMGEN-CANSP2014022310

PATIENT
  Age: 66 Year
  Sex: Female

DRUGS (7)
  1. ENBREL [Suspect]
     Indication: RHEUMATOID ARTHRITIS
     Dosage: 50 MG, QWK
     Route: 058
     Dates: start: 20130828
  2. PREDNISONE [Concomitant]
     Dosage: 3 MG, UNK
  3. CELEBREX [Concomitant]
     Dosage: 200 MG, QD
  4. OMEPRAZOLE [Concomitant]
     Dosage: 1 TABLET ONCE A DAY
  5. CALCIUM [Concomitant]
     Dosage: 500 MG, BID
  6. BISOPROLOL [Concomitant]
     Dosage: HALF A TABLET DAILY
  7. ROSUVASTATIN [Concomitant]
     Dosage: 10 MG ONE TABLET DAILY

REACTIONS (4)
  - Loss of consciousness [Not Recovered/Not Resolved]
  - Limb operation [Recovered/Resolved]
  - Dizziness [Not Recovered/Not Resolved]
  - Neurological symptom [Not Recovered/Not Resolved]
